FAERS Safety Report 5062932-3 (Version None)
Quarter: 2006Q3

REPORT INFORMATION
  Report Type: 
  Country: None (occurrence: None)
  Receive Date: 20060724
  Receipt Date: 20060713
  Transmission Date: 20061208
  Serious: Yes (Hospitalization)
  Sender: FDA-Public Use
  Company Number: 2006087899

PATIENT
  Age: 48 Year
  Sex: Male

DRUGS (2)
  1. CARDENALIN (DOXAZOSIN) [Suspect]
     Indication: HYPERTENSION
     Dosage: ORAL
     Route: 048
     Dates: start: 20050501, end: 20050701
  2. TELMISARTAN (TELMISARTAN) [Suspect]
     Indication: HYPERTENSION
     Dosage: ORAL
     Route: 048
     Dates: start: 20050501, end: 20050701

REACTIONS (7)
  - ASCITES [None]
  - BLOOD CREATININE INCREASED [None]
  - HAEMODIALYSIS [None]
  - HEPATIC FAILURE [None]
  - HEPATOSPLENOMEGALY [None]
  - HYPOCOAGULABLE STATE [None]
  - RENAL IMPAIRMENT [None]
